FAERS Safety Report 4318821-2 (Version None)
Quarter: 2004Q1

REPORT INFORMATION
  Report Type: 
  Country: None (occurrence: None)
  Receive Date: 20040318
  Receipt Date: 20040310
  Transmission Date: 20041129
  Serious: Yes (Hospitalization)
  Sender: FDA-Public Use
  Company Number: WAES 0403USA01102

PATIENT
  Age: 74 Year
  Sex: Male

DRUGS (8)
  1. ASPIRIN [Concomitant]
     Route: 048
  2. HEMIGOXINE NATIVELLE [Concomitant]
     Indication: DIABETES MELLITUS
     Route: 048
  3. TILDIEM [Concomitant]
     Route: 048
  4. DIAMICRON [Suspect]
     Route: 048
     Dates: end: 20040128
  5. GLUCOPHAGE [Concomitant]
     Indication: DIABETES MELLITUS
     Route: 048
  6. EURELIX [Concomitant]
     Route: 048
  7. TRIATEC [Concomitant]
     Route: 048
  8. ZOCOR [Suspect]
     Route: 048
     Dates: end: 20040127

REACTIONS (2)
  - GENERAL PHYSICAL HEALTH DETERIORATION [None]
  - PLEURISY [None]
